FAERS Safety Report 21603365 (Version 1)
Quarter: 2022Q4

REPORT INFORMATION
  Report Type: Spontaneous
  Country: US (occurrence: None)
  Receive Date: 20221115
  Receipt Date: 20221115
  Transmission Date: 20230113
  Serious: No
  Sender: FDA-Public Use
  Company Number: None

PATIENT
  Age: 58 Year
  Sex: Female

DRUGS (1)
  1. MEKINIST [Suspect]
     Active Substance: TRAMETINIB DIMETHYL SULFOXIDE
     Dosage: OTHER FREQUENCY : OTHER;?
     Route: 048
     Dates: start: 202206

REACTIONS (2)
  - Pain [None]
  - Neoplasm malignant [None]

NARRATIVE: CASE EVENT DATE: 20221103
